FAERS Safety Report 8316557-4 (Version None)
Quarter: 2012Q2

REPORT INFORMATION
  Report Type: 
  Country: None (occurrence: None)
  Receive Date: 20120427
  Receipt Date: 20120423
  Transmission Date: 20120825
  Serious: Yes (Other)
  Sender: FDA-Public Use
  Company Number: PHEH2009US18119

PATIENT
  Sex: Female

DRUGS (15)
  1. SYNTHROID [Concomitant]
     Dosage: 150 UG, QD
  2. PERIDEX [Concomitant]
     Dosage: 15 ML, BID
  3. FUROSEMIDE [Concomitant]
     Dosage: 40 MG, QD
  4. LEVOTHYROXINE SODIUM [Concomitant]
     Dosage: 175 UG, QD
  5. LISINOPRIL [Concomitant]
     Dosage: 10 MG, QD
  6. NIFEDIPINE [Concomitant]
     Dosage: 30 MG, QD
  7. PREMPRO [Concomitant]
     Dosage: 1 DF, QD
  8. CLINDAMYCIN [Concomitant]
     Dosage: 300 MG, UNK
  9. ZOMETA [Suspect]
     Indication: METASTASES TO LIVER
  10. PRAVASTATIN [Concomitant]
     Dosage: 40 MG, QD
  11. ZETIA [Concomitant]
     Dosage: 10 MG, QD
  12. CYMBALTA [Concomitant]
     Dosage: 60 MG, QD
  13. ZOMETA [Suspect]
     Indication: METASTASES TO BONE
     Route: 042
     Dates: start: 20040101, end: 20060101
  14. ZOLPIDEM [Concomitant]
     Dosage: 10 MG, PRN
  15. LANSOPRAZOLE [Concomitant]
     Dosage: 30 MG, UNK

REACTIONS (68)
  - PAIN IN JAW [None]
  - EXPOSED BONE IN JAW [None]
  - DEPRESSION [None]
  - CEREBRAL SMALL VESSEL ISCHAEMIC DISEASE [None]
  - CHEST PAIN [None]
  - COMPRESSION FRACTURE [None]
  - RASH [None]
  - PNEUMONIA [None]
  - ULCER [None]
  - AMNESIA [None]
  - INFECTION [None]
  - ANXIETY [None]
  - LYMPHADENOPATHY [None]
  - FACE OEDEMA [None]
  - BONE FRAGMENTATION [None]
  - HAEMORRHAGE [None]
  - ABSCESS [None]
  - HYPERTHYROIDISM [None]
  - FOOT DEFORMITY [None]
  - HEPATIC STEATOSIS [None]
  - CHOLECYSTITIS [None]
  - RIB FRACTURE [None]
  - OSTEONECROSIS OF JAW [None]
  - EMOTIONAL DISTRESS [None]
  - SWELLING [None]
  - GASTROOESOPHAGEAL REFLUX DISEASE [None]
  - ARTERIOSCLEROSIS [None]
  - INTERVERTEBRAL DISC DEGENERATION [None]
  - HYPERTENSION [None]
  - PERIODONTITIS [None]
  - JOINT SWELLING [None]
  - ERYTHEMA [None]
  - PHYSICAL DISABILITY [None]
  - DEFORMITY [None]
  - FOOT FRACTURE [None]
  - NEUROPATHY PERIPHERAL [None]
  - URTICARIA [None]
  - DYSPNOEA [None]
  - INSOMNIA [None]
  - CONTUSION [None]
  - ABSCESS NECK [None]
  - ABDOMINAL PAIN UPPER [None]
  - CATARACT [None]
  - ORAL DISORDER [None]
  - PARAESTHESIA [None]
  - PURULENT DISCHARGE [None]
  - COLONIC POLYP [None]
  - DIVERTICULUM [None]
  - PAIN [None]
  - DYSPHAGIA [None]
  - RENAL CYST [None]
  - PRIMARY SEQUESTRUM [None]
  - ARTHRITIS [None]
  - DERMATITIS CONTACT [None]
  - OESOPHAGEAL SPASM [None]
  - FISTULA [None]
  - CHOLELITHIASIS [None]
  - BONE LESION [None]
  - SINUSITIS [None]
  - DRY EYE [None]
  - BACK PAIN [None]
  - HYPOAESTHESIA [None]
  - INJURY [None]
  - OSTEOMYELITIS ACUTE [None]
  - OSTEOPOROSIS [None]
  - ADRENOMEGALY [None]
  - VITREOUS FLOATERS [None]
  - CONFUSIONAL STATE [None]
